FAERS Safety Report 6091934-3 (Version None)
Quarter: 2009Q1

REPORT INFORMATION
  Report Type: 
  Country: None (occurrence: None)
  Receive Date: 20090225
  Receipt Date: 20081014
  Transmission Date: 20090719
  Serious: No
  Sender: FDA-Public Use
  Company Number: A0751790A

PATIENT
  Age: 54 Year
  Sex: Male

DRUGS (3)
  1. VALTREX [Suspect]
     Dosage: 1CAPL THREE TIMES PER DAY
     Route: 048
     Dates: start: 20081005, end: 20081010
  2. UNSPECIFIED MEDICATION [Suspect]
     Dates: start: 20081005, end: 20081011
  3. TIMOLOL [Concomitant]
     Indication: TREMOR

REACTIONS (6)
  - ABDOMINAL DISCOMFORT [None]
  - CONSTIPATION [None]
  - DECREASED ACTIVITY [None]
  - DRUG INTERACTION [None]
  - HYPERSOMNIA [None]
  - NAUSEA [None]
